FAERS Safety Report 7941828-0 (Version None)
Quarter: 2011Q4

REPORT INFORMATION
  Report Type: 
  Country: None (occurrence: None)
  Receive Date: 20111128
  Receipt Date: 20111123
  Transmission Date: 20120403
  Serious: Yes (Hospitalization, Other)
  Sender: FDA-Public Use
  Company Number: CZ-SANOFI-AVENTIS-2011SA076920

PATIENT
  Age: 67 Year
  Sex: Male
  Weight: 74 kg

DRUGS (2)
  1. ENELBIN [Concomitant]
     Route: 048
     Dates: start: 20100101, end: 20111122
  2. PENTOXIFYLLINE [Suspect]
     Route: 042
     Dates: start: 20111115, end: 20111122

REACTIONS (6)
  - TREMOR [None]
  - TACHYCARDIA [None]
  - ANXIETY [None]
  - CHILLS [None]
  - PYREXIA [None]
  - CLONIC CONVULSION [None]
